FAERS Safety Report 4408641-2 (Version None)
Quarter: 2004Q3

REPORT INFORMATION
  Report Type: 
  Country: None (occurrence: None)
  Receive Date: 20040723
  Receipt Date: 20040712
  Transmission Date: 20050211
  Serious: Yes (Hospitalization)
  Sender: FDA-Public Use
  Company Number: DE-JNJFOC-20040704166

PATIENT
  Sex: Male

DRUGS (1)
  1. DUROGESIC SMAT (FENTANYL) PATCH [Suspect]
     Indication: PAIN
     Dosage: 50 UG/HR, 1 IN 2 DAY, TRANSDERMAL
     Route: 062

REACTIONS (3)
  - COLITIS ULCERATIVE [None]
  - CONDITION AGGRAVATED [None]
  - DRUG INEFFECTIVE [None]
